FAERS Safety Report 18955501 (Version 1)
Quarter: 2021Q1

REPORT INFORMATION
  Report Type: Report from Study
  Country: ES (occurrence: ES)
  Receive Date: 20210301
  Receipt Date: 20210301
  Transmission Date: 20210420
  Serious: Yes (Other)
  Sender: FDA-Public Use
  Company Number: PT-SUNOVION-2021SUN000612

PATIENT

DRUGS (1)
  1. ZEBINIX [Suspect]
     Active Substance: ESLICARBAZEPINE ACETATE
     Indication: PARTIAL SEIZURES
     Dosage: 800 MILLIGRAM, 1X / DAY
     Route: 048

REACTIONS (4)
  - Headache [Recovered/Resolved]
  - Memory impairment [Recovered/Resolved]
  - Delirium [Recovered/Resolved]
  - Impaired ability to use machinery [Recovered/Resolved]

NARRATIVE: CASE EVENT DATE: 20200712
